FAERS Safety Report 5862377-X (Version None)
Quarter: 2008Q3

REPORT INFORMATION
  Report Type: 
  Country: None (occurrence: None)
  Receive Date: 20080826
  Receipt Date: 20080812
  Transmission Date: 20090109
  Serious: Yes (Other)
  Sender: FDA-Public Use
  Company Number: THQ2008A01522

PATIENT
  Age: 81 Year
  Sex: Female

DRUGS (10)
  1. LANSOPRAZOLE [Suspect]
     Indication: HELICOBACTER INFECTION
     Dosage: 60 MG (30 MG,2 IN 1 D), PER ORAL
     Route: 048
     Dates: start: 20080227, end: 20080303
  2. LANSOPRAZOLE [Suspect]
     Indication: PEPTIC ULCER
     Dosage: 60 MG (30 MG,2 IN 1 D), PER ORAL
     Route: 048
     Dates: start: 20080227, end: 20080303
  3. BENDROFLUMETHIAZIDE [Concomitant]
  4. LUMIGAN (RIMATOPROST) [Concomitant]
  5. GAVISCON (GAVISCON  /01405501/) [Concomitant]
  6. LACTULOSE [Concomitant]
  7. LERCANIDIPINE [Concomitant]
  8. QUININE [Concomitant]
  9. SIMVASTATIN [Concomitant]
  10. LEVOTHYROXINE SODIUM [Concomitant]

REACTIONS (2)
  - CONDITION AGGRAVATED [None]
  - PSORIASIS [None]
